FAERS Safety Report 19101556 (Version 1)
Quarter: 2021Q2

REPORT INFORMATION
  Report Type: Spontaneous
  Country: US (occurrence: US)
  Receive Date: 20210407
  Receipt Date: 20210407
  Transmission Date: 20210717
  Serious: No
  Sender: FDA-Public Use
  Company Number: None

PATIENT
  Age: 49 Year
  Sex: Male
  Weight: 59.87 kg

DRUGS (1)
  1. VANCOMYCIN (VANCOMYCIN HCL 1GM/VIL INJ) [Suspect]
     Active Substance: VANCOMYCIN HYDROCHLORIDE
     Indication: CELLULITIS
     Dosage: ?          OTHER ROUTE:IV?
     Dates: start: 20170211, end: 20170212

REACTIONS (4)
  - Infusion related reaction [None]
  - Pruritus [None]
  - Erythema multiforme [None]
  - Urticaria [None]

NARRATIVE: CASE EVENT DATE: 20170211
